FAERS Safety Report 12622403 (Version 1)
Quarter: 2016Q3

REPORT INFORMATION
  Report Type: Report from Study
  Country: US (occurrence: US)
  Receive Date: 20160804
  Receipt Date: 20160804
  Transmission Date: 20161109
  Serious: Yes (Hospitalization)
  Sender: FDA-Public Use
  Company Number: PHEH2016US019337

PATIENT
  Sex: Female

DRUGS (3)
  1. TOBI PODHALER [Suspect]
     Active Substance: TOBRAMYCIN
     Indication: PSEUDOMONAS INFECTION
     Route: 065
     Dates: start: 20160622
  2. TOBI PODHALER [Suspect]
     Active Substance: TOBRAMYCIN
     Indication: CYSTIC FIBROSIS
  3. TOBI PODHALER [Suspect]
     Active Substance: TOBRAMYCIN
     Indication: TYPE 1 DIABETES MELLITUS

REACTIONS (2)
  - Cystic fibrosis [Unknown]
  - Concomitant disease aggravated [Unknown]
